FAERS Safety Report 25620481 (Version 3)
Quarter: 2025Q3

REPORT INFORMATION
  Report Type: Spontaneous
  Country: US (occurrence: US)
  Receive Date: 20250730
  Receipt Date: 20250819
  Transmission Date: 20251020
  Serious: Yes (Other)
  Sender: ARGENX BVBA
  Company Number: US-ARGENX-2025-ARGX-US009881

PATIENT

DRUGS (5)
  1. VYVGART [Suspect]
     Active Substance: EFGARTIGIMOD ALFA-FCAB
     Indication: Myasthenia gravis
     Route: 042
     Dates: start: 202203, end: 202402
  2. VYVGART HYTRULO [Suspect]
     Active Substance: EFGARTIGIMOD ALFA\HYALURONIDASE-QVFC
     Indication: Myasthenia gravis
     Route: 058
     Dates: start: 20240201
  3. MESTINON [Concomitant]
     Active Substance: PYRIDOSTIGMINE BROMIDE
     Indication: Product used for unknown indication
     Route: 065
  4. PREDNISONE [Concomitant]
     Active Substance: PREDNISONE
     Indication: Product used for unknown indication
     Route: 065
  5. OCTINOXATE AND OCTOCRYLENE [Concomitant]
     Active Substance: ENSULIZOLE\OCTINOXATE\OCTOCRYLENE\TITANIUM DIOXIDE
     Indication: Product used for unknown indication
     Route: 065

REACTIONS (3)
  - Myasthenia gravis crisis [Not Recovered/Not Resolved]
  - Thymectomy [Not Recovered/Not Resolved]
  - Therapy change [Unknown]
